FAERS Safety Report 8607496 (Version 6)
Quarter: 2013Q2

REPORT INFORMATION
  Report Type: Spontaneous
  Country: US (occurrence: US)
  Receive Date: 20120611
  Receipt Date: 20130624
  Transmission Date: 20140414
  Serious: Yes (Hospitalization)
  Sender: FDA-Public Use
  Company Number: US-VIROPHARMA INCORPORATED-20120604CINRY3018

PATIENT
  Age: 25 Year
  Sex: Female
  Weight: 77.18 kg

DRUGS (8)
  1. CINRYZE (C1 ESTERASE INHIBITOR (HUMAN)) [Suspect]
     Indication: HEREDITARY ANGIOEDEMA
     Dates: start: 2009, end: 2012
  2. CINRYZE (C1 ESTERASE INHIBITOR (HUMAN)) [Suspect]
     Dates: start: 2012, end: 2012
  3. CINRYZE (C1 ESTERASE INHIBITOR (HUMAN)) [Suspect]
     Dates: start: 2012, end: 20120912
  4. CINRYZE (C1 ESTERASE INHIBITOR (HUMAN)) [Suspect]
     Dosage: UNKNOWN
     Dates: start: 2013, end: 20130130
  5. NEXIUM [Concomitant]
     Indication: PRODUCT USED FOR UNKNOWN INDICATION
     Route: 048
     Dates: end: 20121003
  6. XANAX [Concomitant]
     Indication: ANXIETY
     Route: 048
  7. VICODIN [Concomitant]
     Indication: PAIN
     Route: 050
     Dates: end: 20121003
  8. PRENATAL VITAMINS [Concomitant]
     Indication: PREGNANCY
     Dosage: UNKNOWN
     Route: 048

REACTIONS (19)
  - Upper respiratory tract infection [Recovering/Resolving]
  - Urinary tract infection [Recovering/Resolving]
  - Hereditary angioedema [Unknown]
  - Infusion related reaction [Recovered/Resolved]
  - Vomiting [Recovered/Resolved]
  - Hypotension [Unknown]
  - Inappropriate schedule of drug administration [Not Recovered/Not Resolved]
  - Therapy change [Not Recovered/Not Resolved]
  - Exposure during pregnancy [Recovered/Resolved]
  - Drug dose omission [Recovered/Resolved]
  - Arthropod bite [Recovering/Resolving]
  - Headache [Not Recovered/Not Resolved]
  - Vomiting [Not Recovered/Not Resolved]
  - Paraesthesia [Not Recovered/Not Resolved]
  - Pyrexia [Not Recovered/Not Resolved]
  - Dehydration [Not Recovered/Not Resolved]
  - Infusion related reaction [Not Recovered/Not Resolved]
  - Myalgia [Not Recovered/Not Resolved]
  - Unevaluable event [Unknown]
